FAERS Safety Report 5093096-8 (Version None)
Quarter: 2006Q3

REPORT INFORMATION
  Report Type: 
  Country: None (occurrence: None)
  Receive Date: 20060828
  Receipt Date: 20060822
  Transmission Date: 20061208
  Serious: Yes (Other)
  Sender: FDA-Public Use
  Company Number: 2006SP000001

PATIENT
  Sex: Female

DRUGS (1)
  1. NASONEX [Suspect]
     Indication: DRUG USE FOR UNKNOWN INDICATION
     Dates: end: 20051201

REACTIONS (3)
  - INTRAOCULAR PRESSURE INCREASED [None]
  - PAIN IN EXTREMITY [None]
  - TRIGGER FINGER [None]
